FAERS Safety Report 13423842 (Version 1)
Quarter: 2017Q2

REPORT INFORMATION
  Report Type: Spontaneous
  Country: SE (occurrence: SE)
  Receive Date: 20170410
  Receipt Date: 20170410
  Transmission Date: 20170830
  Serious: Yes (Hospitalization)
  Sender: FDA-Public Use
  Company Number: SE-PFIZER INC-2017152846

PATIENT
  Age: 33 Year
  Sex: Male

DRUGS (5)
  1. TRIOBE /01079901/ [Concomitant]
     Dosage: UNK
  2. STESOLID [Concomitant]
     Active Substance: DIAZEPAM
     Dosage: UNK
  3. PANODIL [Concomitant]
     Active Substance: ACETAMINOPHEN
     Dosage: UNK
  4. ROCEPHALIN [Concomitant]
     Active Substance: CEFTRIAXONE
     Dosage: UNK
  5. XANOR [Suspect]
     Active Substance: ALPRAZOLAM
     Dosage: UNK, SINGLE
     Route: 048
     Dates: start: 20150312, end: 20150312

REACTIONS (3)
  - Depressed level of consciousness [Recovered/Resolved]
  - Toxicity to various agents [Recovered/Resolved]
  - Suicide attempt [Recovered/Resolved]

NARRATIVE: CASE EVENT DATE: 20150312
